FAERS Safety Report 8026593-3 (Version None)
Quarter: 2012Q1

REPORT INFORMATION
  Report Type: 
  Country: None (occurrence: None)
  Receive Date: 20120106
  Receipt Date: 20100823
  Transmission Date: 20120608
  Serious: No
  Sender: FDA-Public Use
  Company Number: US-BIOGENIDEC-2010BI033811

PATIENT
  Age: 48 Year
  Sex: Male

DRUGS (9)
  1. IBUPROFEN (ADVIL) [Concomitant]
  2. AVONEX [Concomitant]
     Indication: MULTIPLE SCLEROSIS
     Route: 030
     Dates: start: 20011207
  3. DIAZEPAM [Concomitant]
  4. ZOLOFT [Concomitant]
  5. TYSABRI [Suspect]
     Route: 042
     Dates: start: 20091214, end: 20100809
  6. AVONEX [Concomitant]
     Route: 030
  7. NEURONTIN [Concomitant]
  8. VITAMIN B-12 [Concomitant]
  9. TYSABRI [Suspect]
     Indication: MULTIPLE SCLEROSIS
     Route: 042
     Dates: start: 20070116, end: 20080703

REACTIONS (14)
  - ARTHRALGIA [None]
  - ASTHENIA [None]
  - FATIGUE [None]
  - NASOPHARYNGITIS [None]
  - URTICARIA [None]
  - RASH PAPULAR [None]
  - PRURITUS GENERALISED [None]
  - MULTIPLE SCLEROSIS RELAPSE [None]
  - FEELING ABNORMAL [None]
  - NAUSEA [None]
  - HYPERHIDROSIS [None]
  - OROPHARYNGEAL PAIN [None]
  - DECREASED IMMUNE RESPONSIVENESS [None]
  - INFLUENZA LIKE ILLNESS [None]
